FAERS Safety Report 5586119-0 (Version None)
Quarter: 2007Q4

REPORT INFORMATION
  Report Type: 
  Country: None (occurrence: None)
  Receive Date: 20071205
  Receipt Date: 20061031
  Transmission Date: 20080405
  Serious: Yes (Other)
  Sender: FDA-Public Use
  Company Number: HQWYE614213SEP06

PATIENT
  Sex: Male
  Weight: 68.1 kg

DRUGS (4)
  1. EFFEXOR XR [Suspect]
     Indication: DEPRESSION
     Dosage: 150 MG, FREQUENCY UNSPECIFIED, ORAL ; 75 MG, FREQUENCY UNSPECIFIED, ORAL
     Route: 048
     Dates: end: 20060201
  2. EFFEXOR XR [Suspect]
     Indication: DEPRESSION
     Dosage: 150 MG, FREQUENCY UNSPECIFIED, ORAL ; 75 MG, FREQUENCY UNSPECIFIED, ORAL
     Route: 048
     Dates: start: 20050701
  3. CLONOPIN [Concomitant]
  4. DOXEPIN HCL [Concomitant]

REACTIONS (5)
  - DRUG INEFFECTIVE [None]
  - HOMICIDAL IDEATION [None]
  - INTENTIONAL DRUG MISUSE [None]
  - NONSPECIFIC REACTION [None]
  - SUICIDAL IDEATION [None]
